FAERS Safety Report 10269008 (Version 1)
Quarter: 2014Q2

REPORT INFORMATION
  Report Type: Spontaneous
  Country: DK (occurrence: DK)
  Receive Date: 20140630
  Receipt Date: 20140630
  Transmission Date: 20141212
  Serious: Yes (Other)
  Sender: FDA-Public Use
  Company Number: DK-B.I. PHARMACEUTICALS,INC./RIDGEFIELD-2014-BI-24698YA

PATIENT
  Age: 75 Year
  Sex: Male

DRUGS (2)
  1. TAMSULOSINA [Suspect]
     Indication: LOWER URINARY TRACT SYMPTOMS
     Route: 065
  2. TAMSULOSINA [Suspect]
     Indication: BENIGN PROSTATIC HYPERPLASIA

REACTIONS (5)
  - Hypersensitivity [Unknown]
  - Malaise [Unknown]
  - Palpitations [Unknown]
  - Dizziness postural [Unknown]
  - Drug ineffective [Unknown]
